FAERS Safety Report 7520864-2 (Version None)
Quarter: 2011Q2

REPORT INFORMATION
  Report Type: 
  Country: None (occurrence: None)
  Receive Date: 20110603
  Receipt Date: 20101109
  Transmission Date: 20111010
  Serious: Yes (Death, Other)
  Sender: FDA-Public Use
  Company Number: US-BAYER-201038443NA

PATIENT
  Age: 55 Year
  Sex: Male

DRUGS (1)
  1. NEXAVAR [Suspect]
     Indication: HEPATIC NEOPLASM MALIGNANT
     Route: 048
     Dates: start: 20101023, end: 20101001

REACTIONS (6)
  - HEADACHE [None]
  - DEATH [None]
  - CONFUSIONAL STATE [None]
  - JAUNDICE [None]
  - NAUSEA [None]
  - OEDEMA PERIPHERAL [None]
